FAERS Safety Report 11221153 (Version 1)
Quarter: 2015Q2

REPORT INFORMATION
  Report Type: Spontaneous
  Country: US (occurrence: US)
  Receive Date: 20150626
  Receipt Date: 20150626
  Transmission Date: 20150821
  Serious: Yes (Hospitalization, Other)
  Sender: FDA-Public Use
  Company Number: US-AMGEN-USASP2015062589

PATIENT
  Age: 56 Year
  Sex: Female

DRUGS (1)
  1. ENBREL [Suspect]
     Active Substance: ETANERCEPT
     Indication: PSORIASIS
     Dosage: 50 MG, QWK
     Route: 065
     Dates: start: 20041001

REACTIONS (14)
  - Pain [Unknown]
  - Restless legs syndrome [Not Recovered/Not Resolved]
  - Paranoia [Not Recovered/Not Resolved]
  - Walking aid user [Not Recovered/Not Resolved]
  - Mental status changes [Not Recovered/Not Resolved]
  - Hepatic cirrhosis [Unknown]
  - Hepatitis C [Unknown]
  - Fibromyalgia [Not Recovered/Not Resolved]
  - Blood count abnormal [Unknown]
  - Gait disturbance [Not Recovered/Not Resolved]
  - Arthralgia [Not Recovered/Not Resolved]
  - Tremor [Not Recovered/Not Resolved]
  - Bedridden [Unknown]
  - Sciatica [Not Recovered/Not Resolved]

NARRATIVE: CASE EVENT DATE: 20150623
